FAERS Safety Report 16025740 (Version 2)
Quarter: 2019Q2

REPORT INFORMATION
  Report Type: Spontaneous
  Country: GR (occurrence: GR)
  Receive Date: 20190302
  Receipt Date: 20190402
  Transmission Date: 20190711
  Serious: Yes (Hospitalization, Other)
  Sender: FDA-Public Use
  Company Number: GR-ACCORD-109952

PATIENT
  Age: 62 Year
  Sex: Female

DRUGS (7)
  1. CARVEDILOL/CARVEDILOL HYDROCHLODRIDE [Suspect]
     Active Substance: CARVEDILOL HYDROCHLORIDE
     Indication: PRODUCT USED FOR UNKNOWN INDICATION
     Dosage: UNK
  2. ALLOPURINOL. [Suspect]
     Active Substance: ALLOPURINOL
     Indication: PRODUCT USED FOR UNKNOWN INDICATION
     Dosage: UNK
  3. LEVOTHYROXINE. [Suspect]
     Active Substance: LEVOTHYROXINE
     Indication: PRODUCT USED FOR UNKNOWN INDICATION
     Dosage: UNK
  4. SPIRONOLACTONE. [Suspect]
     Active Substance: SPIRONOLACTONE
     Indication: PRODUCT USED FOR UNKNOWN INDICATION
     Dosage: UNK
  5. FUROSEMIDE. [Suspect]
     Active Substance: FUROSEMIDE
     Indication: PRODUCT USED FOR UNKNOWN INDICATION
     Dosage: UNK
  6. INDAPAMIDE. [Suspect]
     Active Substance: INDAPAMIDE
     Indication: PRODUCT USED FOR UNKNOWN INDICATION
     Dosage: UNK
  7. ACENOCOUMAROL [Suspect]
     Active Substance: ACENOCOUMAROL
     Indication: PRODUCT USED FOR UNKNOWN INDICATION
     Dosage: UNK

REACTIONS (13)
  - Contusion [Unknown]
  - Haematuria [Recovered/Resolved]
  - Gastric disorder [Unknown]
  - Gingival bleeding [Recovered/Resolved]
  - Vessel puncture site haemorrhage [Recovered/Resolved]
  - Gastritis erosive [Unknown]
  - Acute kidney injury [Recovered/Resolved]
  - Azotaemia [Recovering/Resolving]
  - Ecchymosis [Recovered/Resolved]
  - Mucocutaneous haemorrhage [Recovered/Resolved]
  - Haematemesis [Recovered/Resolved]
  - Blood creatinine increased [Recovering/Resolving]
  - Platelet dysfunction [Recovered/Resolved]
